FAERS Safety Report 8843037 (Version 3)
Quarter: 2013Q1

REPORT INFORMATION
  Report Type: Spontaneous
  Country: BR (occurrence: BR)
  Receive Date: 20121016
  Receipt Date: 20130226
  Transmission Date: 20140127
  Serious: Yes (Life-Threatening, Hospitalization, Other)
  Sender: FDA-Public Use
  Company Number: BR-GLAXOSMITHKLINE-A0997556A

PATIENT
  Age: 7 Year
  Sex: Male
  Weight: 32 kg

DRUGS (2)
  1. LAMICTAL [Suspect]
     Indication: EPILEPSY
     Dosage: 25MG PER DAY
     Route: 048
     Dates: start: 20120924, end: 20121005
  2. SODIUM VALPROATE [Suspect]
     Indication: EPILEPSY
     Dosage: 500MG PER DAY

REACTIONS (9)
  - Toxic epidermal necrolysis [Recovered/Resolved]
  - Blister [Recovered/Resolved]
  - Skin discolouration [Recovered/Resolved]
  - Pyrexia [Recovered/Resolved]
  - Dry skin [Recovered/Resolved]
  - Aphonia [Recovered/Resolved]
  - Skin disorder [Recovered/Resolved]
  - Skin lesion [Recovered/Resolved]
  - Oedema [Recovered/Resolved]
